FAERS Safety Report 18528176 (Version 1)
Quarter: 2020Q4

REPORT INFORMATION
  Report Type: Report from Study
  Country: BR (occurrence: BR)
  Receive Date: 20201120
  Receipt Date: 20201120
  Transmission Date: 20210114
  Serious: Yes (Life-Threatening, Hospitalization, Other)
  Sender: FDA-Public Use
  Company Number: NVSC2020BR310107

PATIENT
  Sex: Female

DRUGS (2)
  1. DIOVAN [Suspect]
     Active Substance: VALSARTAN
     Indication: HYPERTENSION
     Dosage: UNK (STOPPED TWO YEARS AGO)
     Route: 065
  2. DIOVAN HCT [Concomitant]
     Active Substance: HYDROCHLOROTHIAZIDE\VALSARTAN
     Indication: HYPERTENSION
     Dosage: 320 MG+12,5 MG (STARTED TWO YEARS AGO)
     Route: 065

REACTIONS (9)
  - Hypoacusis [Not Recovered/Not Resolved]
  - Confusional state [Unknown]
  - Cerebrovascular accident [Unknown]
  - Deafness unilateral [Not Recovered/Not Resolved]
  - Deafness [Unknown]
  - Ear disorder [Unknown]
  - Blood pressure abnormal [Unknown]
  - Hypertension [Unknown]
  - Drug effect less than expected [Unknown]
